FAERS Safety Report 10885611 (Version 1)
Quarter: 2015Q1

REPORT INFORMATION
  Report Type: Spontaneous
  Country: AU (occurrence: AU)
  Receive Date: 20150304
  Receipt Date: 20150304
  Transmission Date: 20150721
  Serious: Yes (Other)
  Sender: FDA-Public Use
  Company Number: AU-PFIZER INC-2015071106

PATIENT
  Sex: Female

DRUGS (2)
  1. LYRICA [Suspect]
     Active Substance: PREGABALIN
     Dosage: 25 MG, UNK
  2. LYRICA [Suspect]
     Active Substance: PREGABALIN
     Indication: PAIN
     Dosage: 75 MG, UNK
     Dates: start: 201501

REACTIONS (9)
  - Dysarthria [Unknown]
  - Vision blurred [Unknown]
  - Dyskinesia [Unknown]
  - Drug ineffective [Unknown]
  - Abasia [Unknown]
  - Feeling drunk [Unknown]
  - Somnolence [Unknown]
  - Activities of daily living impaired [Unknown]
  - Alopecia [Unknown]

NARRATIVE: CASE EVENT DATE: 201501
